FAERS Safety Report 4370846-7 (Version None)
Quarter: 2004Q2

REPORT INFORMATION
  Report Type: 
  Country: None (occurrence: None)
  Receive Date: 20040601
  Receipt Date: 20040521
  Transmission Date: 20050107
  Serious: Yes (Hospitalization)
  Sender: FDA-Public Use
  Company Number: 04P-062-0258984-00

PATIENT
  Age: 53 Year
  Sex: Female
  Weight: 58 kg

DRUGS (5)
  1. HUMIRA [Suspect]
     Indication: RHEUMATOID ARTHRITIS
     Dosage: 40 MG, 1 IN 1 WK, SUBCUTANEOUS
     Route: 058
     Dates: start: 20031017
  2. ARELIX ACE [Concomitant]
  3. ISOPROMETHAZINE HYDROCHLORIDE [Concomitant]
  4. AMITRIPTYLINE HCL [Concomitant]
  5. PANTOPRAZOLE SODIUM [Concomitant]

REACTIONS (6)
  - CONDITION AGGRAVATED [None]
  - DEAFNESS NEUROSENSORY [None]
  - DIZZINESS [None]
  - EAR PAIN [None]
  - TINNITUS [None]
  - VESTIBULAR DISORDER [None]
